FAERS Safety Report 5482493-4 (Version None)
Quarter: 2007Q4

REPORT INFORMATION
  Report Type: 
  Country: None (occurrence: None)
  Receive Date: 20071011
  Receipt Date: 20070621
  Transmission Date: 20080405
  Serious: Yes (Other)
  Sender: FDA-Public Use
  Company Number: A0650456A

PATIENT
  Age: 53 Year
  Sex: Female
  Weight: 56.4 kg

DRUGS (6)
  1. TYKERB [Suspect]
     Indication: BREAST CANCER
     Dosage: 250MG FIVE TIMES PER DAY
     Route: 048
     Dates: start: 20070430, end: 20070507
  2. REMITEX [Concomitant]
  3. NEXIUM [Concomitant]
     Dosage: 40MG TWICE PER DAY
     Route: 048
  4. ARIMIDEX [Concomitant]
     Indication: BREAST CANCER
     Route: 048
  5. DURAGESIC-100 [Concomitant]
     Indication: PAIN
     Dosage: 400MCG SEE DOSAGE TEXT
     Route: 062
  6. DILAUDID [Concomitant]
     Indication: PAIN
     Dosage: 2MG AS REQUIRED
     Route: 048

REACTIONS (1)
  - DIARRHOEA [None]
